FAERS Safety Report 4657691-X (Version None)
Quarter: 2005Q2

REPORT INFORMATION
  Report Type: 
  Country: None (occurrence: None)
  Receive Date: 20050510
  Receipt Date: 20050425
  Transmission Date: 20051028
  Serious: Yes (Death, Hospitalization)
  Sender: FDA-Public Use
  Company Number: FR-JNJFOC-20050105215

PATIENT
  Age: 45 Year
  Sex: Female
  Weight: 47 kg

DRUGS (15)
  1. REMICADE [Suspect]
     Route: 042
  2. REMICADE [Suspect]
     Route: 042
  3. REMICADE [Suspect]
     Route: 042
  4. REMICADE [Suspect]
     Indication: RHEUMATOID ARTHRITIS
     Route: 042
  5. METHOTREXATE [Suspect]
     Indication: RHEUMATOID ARTHRITIS
     Route: 049
  6. DEROXAT [Concomitant]
     Route: 049
  7. PREDNISONE [Concomitant]
     Indication: RHEUMATOID ARTHRITIS
     Route: 049
  8. SPECIAFOLDINE [Concomitant]
     Route: 049
  9. XANAX [Concomitant]
     Route: 049
  10. ACTONEL [Concomitant]
     Route: 049
  11. CACIT D3 [Concomitant]
     Route: 049
  12. CACIT D3 [Concomitant]
     Route: 049
  13. CALDINE [Concomitant]
     Route: 049
  14. OGAST [Concomitant]
     Route: 049
  15. ZOPILCONE [Concomitant]
     Route: 049

REACTIONS (4)
  - CONFUSIONAL STATE [None]
  - INTERSTITIAL LUNG DISEASE [None]
  - RESPIRATORY FAILURE [None]
  - URINARY TRACT INFECTION [None]
